FAERS Safety Report 6564458-4 (Version None)
Quarter: 2010Q1

REPORT INFORMATION
  Report Type: 
  Country: None (occurrence: None)
  Receive Date: 20100201
  Receipt Date: 20100127
  Transmission Date: 20100710
  Serious: No
  Sender: FDA-Public Use
  Company Number: US-BAYER-201012596NA

PATIENT
  Age: 40 Year
  Sex: Male

DRUGS (2)
  1. LEVITRA [Suspect]
     Indication: ERECTILE DYSFUNCTION
     Dosage: UNIT DOSE: 20 MG
     Route: 048
     Dates: start: 20080101
  2. CLARITHROMYCIN [Concomitant]

REACTIONS (2)
  - FLUSHING [None]
  - OCULAR HYPERAEMIA [None]
